FAERS Safety Report 23269503 (Version 1)
Quarter: 2023Q4

REPORT INFORMATION
  Report Type: Other
  Country: CA (occurrence: CA)
  Receive Date: 20231207
  Receipt Date: 20231207
  Transmission Date: 20240110
  Serious: Yes (Hospitalization, Other)
  Sender: FDA-Public Use
  Company Number: CA-APOTEX-2023AP017456

PATIENT
  Age: 54 Year
  Sex: Male

DRUGS (2)
  1. IMATINIB [Suspect]
     Active Substance: IMATINIB
     Indication: Gastrointestinal stromal tumour
     Dosage: 400 MILLIGRAM, QD
     Route: 048
  2. IMATINIB [Suspect]
     Active Substance: IMATINIB
     Dosage: 300 MILLIGRAM, QD
     Route: 048

REACTIONS (12)
  - Bacterial infection [Recovering/Resolving]
  - Illness [Recovering/Resolving]
  - Drug intolerance [Recovering/Resolving]
  - Metastases to liver [Recovering/Resolving]
  - Neoplasm recurrence [Recovering/Resolving]
  - Pain [Recovering/Resolving]
  - Metastasis [Recovering/Resolving]
  - Asthenia [Recovering/Resolving]
  - Fatigue [Recovering/Resolving]
  - Nasopharyngitis [Recovering/Resolving]
  - Pyrexia [Recovering/Resolving]
  - Sinusitis [Recovering/Resolving]
